FAERS Safety Report 5086592-0 (Version None)
Quarter: 2006Q3

REPORT INFORMATION
  Report Type: 
  Country: None (occurrence: None)
  Receive Date: 20060823
  Receipt Date: 20060821
  Transmission Date: 20061208
  Serious: Yes (Life-Threatening)
  Sender: FDA-Public Use
  Company Number: FR-GLAXOSMITHKLINE-B0434936A

PATIENT
  Age: 62 Year
  Sex: Male

DRUGS (1)
  1. AMOXICILLIN [Suspect]
     Indication: DENTAL CARE
     Dosage: 1TAB SINGLE DOSE
     Route: 048
     Dates: start: 20051215, end: 20051215

REACTIONS (6)
  - ANAPHYLACTIC REACTION [None]
  - DRUG HYPERSENSITIVITY [None]
  - FACE OEDEMA [None]
  - HYPOTENSION [None]
  - PRURIGO [None]
  - SYNCOPE [None]
